FAERS Safety Report 24673014 (Version 1)
Quarter: 2024Q4

REPORT INFORMATION
  Report Type: Spontaneous
  Country: US (occurrence: US)
  Receive Date: 20241128
  Receipt Date: 20241128
  Transmission Date: 20250115
  Serious: No
  Sender: ABBVIE
  Company Number: US-ABBVIE-6013750

PATIENT
  Age: 92 Year
  Sex: Female

DRUGS (5)
  1. CYCLOSPORINE [Suspect]
     Active Substance: CYCLOSPORINE
     Indication: Dry eye
     Dosage: 1 DROP ONCE A DAY IN MORNING
     Route: 047
  2. ELIQUIS [Concomitant]
     Active Substance: APIXABAN
     Indication: Atrial fibrillation
     Route: 065
  3. COREG [Concomitant]
     Active Substance: CARVEDILOL
     Indication: Cardiac disorder
  4. SYNTHROID [Concomitant]
     Active Substance: LEVOTHYROXINE SODIUM
     Indication: Hypothyroidism
     Route: 048
  5. MIRALAX [Concomitant]
     Active Substance: POLYETHYLENE GLYCOL 3350
     Indication: Faeces hard
     Dosage: AS NEEDED.

REACTIONS (9)
  - Gait disturbance [Recovered/Resolved]
  - Swelling face [Recovered/Resolved]
  - Eye swelling [Recovered/Resolved]
  - Lip swelling [Recovered/Resolved]
  - Swelling face [Recovered/Resolved]
  - Dysarthria [Recovered/Resolved]
  - Asthenia [Recovered/Resolved]
  - Abnormal behaviour [Recovered/Resolved]
  - Hypersensitivity [Recovered/Resolved]
